FAERS Safety Report 19541290 (Version 1)
Quarter: 2021Q3

REPORT INFORMATION
  Report Type: Spontaneous
  Country: US (occurrence: US)
  Receive Date: 20210714
  Receipt Date: 20210714
  Transmission Date: 20211014
  Serious: Yes (Hospitalization, Other)
  Sender: FDA-Public Use
  Company Number: None

PATIENT
  Age: 34 Year
  Sex: Female
  Weight: 56.25 kg

DRUGS (1)
  1. TIANEPTINE SODIUM [Suspect]
     Active Substance: TIANEPTINE SODIUM
     Indication: DEPRESSION
     Dosage: ?          QUANTITY:25 GRAMS OF POWDER;?
     Route: 060
     Dates: start: 20200303, end: 20210701

REACTIONS (3)
  - Drug dependence [None]
  - Intentional product use issue [None]
  - Withdrawal syndrome [None]

NARRATIVE: CASE EVENT DATE: 20210401
